FAERS Safety Report 11259010 (Version 1)
Quarter: 2015Q2

REPORT INFORMATION
  Report Type: Spontaneous
  Country: US (occurrence: None)
  Receive Date: 20150617
  Receipt Date: 20150617
  Transmission Date: 20150821
  Serious: No
  Sender: FDA-Public Use
  Company Number: 2015TASUS000675

PATIENT
  Age: 25 Year
  Sex: Female

DRUGS (13)
  1. CRYSELLE (ETHINYLESTRADIOL, NORGESTREL) [Concomitant]
  2. CARAFATE [Concomitant]
     Active Substance: SUCRALFATE
  3. LINACLOTIDE (LINACLOTIDE) [Concomitant]
     Active Substance: LINACLOTIDE
  4. LACTAID (TILACTASE) [Concomitant]
  5. HETLIOZ [Suspect]
     Active Substance: TASIMELTEON
     Indication: BLINDNESS
     Dates: start: 20140611
  6. PROBIOTIC (BIFIDOBACTERIUM LACTIS) [Suspect]
     Active Substance: BIFIDOBACTERIUM ANIMALIS SUBSP. LACTIS
     Indication: PRODUCT USED FOR UNKNOWN INDICATION
  7. GAS-X (SIMETICONE) [Concomitant]
  8. SINGULAIR [Concomitant]
     Active Substance: MONTELUKAST SODIUM
  9. PANTOPRAZOLE SODIUM (PANTOPRAZOLE SODIUM) [Concomitant]
  10. MIRALAX [Concomitant]
     Active Substance: POLYETHYLENE GLYCOL 3350
  11. OMEGA 3 (FISH OIL) [Suspect]
     Active Substance: OMEGA-3 FATTY ACIDS
     Indication: PRODUCT USED FOR UNKNOWN INDICATION
  12. ZYRTEC [Concomitant]
     Active Substance: CETIRIZINE HYDROCHLORIDE
  13. LIPITOR [Concomitant]
     Active Substance: ATORVASTATIN CALCIUM

REACTIONS (3)
  - Drug effect decreased [None]
  - Drug interaction [None]
  - Sinusitis [None]

NARRATIVE: CASE EVENT DATE: 2014
